FAERS Safety Report 4521049-4 (Version None)
Quarter: 2004Q4

REPORT INFORMATION
  Report Type: 
  Country: None (occurrence: None)
  Receive Date: 20041206
  Receipt Date: 20041123
  Transmission Date: 20050328
  Serious: Yes (Disabling)
  Sender: FDA-Public Use
  Company Number: 2004-122734-NL

PATIENT
  Age: 35 Year
  Sex: Female

DRUGS (1)
  1. NUVARING [Suspect]
     Indication: CONTRACEPTION
     Dosage: DF, VAGINAL
     Route: 067
     Dates: start: 20040101, end: 20040515

REACTIONS (4)
  - CANDIDIASIS [None]
  - CYSTITIS [None]
  - HAEMATOCHEZIA [None]
  - SUBCUTANEOUS ABSCESS [None]
